FAERS Safety Report 7499119-0 (Version None)
Quarter: 2011Q2

REPORT INFORMATION
  Report Type: 
  Country: None (occurrence: None)
  Receive Date: 20110524
  Receipt Date: 20110519
  Transmission Date: 20111010
  Serious: Yes (Death, Hospitalization, Other)
  Sender: FDA-Public Use
  Company Number: US-ABBOTT-11P-163-0720449-00

PATIENT
  Sex: Male
  Weight: 72.64 kg

DRUGS (4)
  1. HUMIRA [Suspect]
     Indication: PSORIASIS
     Dates: start: 20090901, end: 20110315
  2. CRESTOR [Concomitant]
     Indication: BLOOD CHOLESTEROL INCREASED
  3. CALCIUM CARBONATE [Concomitant]
     Indication: MINERAL SUPPLEMENTATION
  4. ASPIRIN [Concomitant]
     Indication: CARDIAC DISORDER

REACTIONS (9)
  - SUDDEN DEATH [None]
  - OSTEOMYELITIS [None]
  - MYOCARDIAL INFARCTION [None]
  - CARDIAC ARREST [None]
  - CHEST PAIN [None]
  - INTRACARDIAC THROMBUS [None]
  - CARDIAC VALVE DISEASE [None]
  - ARTERIAL OCCLUSIVE DISEASE [None]
  - TROPONIN INCREASED [None]
